FAERS Safety Report 7805564-3 (Version None)
Quarter: 2011Q4

REPORT INFORMATION
  Report Type: 
  Country: None (occurrence: None)
  Receive Date: 20111010
  Receipt Date: 20111005
  Transmission Date: 20120403
  Serious: Yes (Hospitalization)
  Sender: FDA-Public Use
  Company Number: US-MERCK-1109USA01921

PATIENT
  Age: 56 Year
  Sex: Female

DRUGS (12)
  1. FOSAMAX [Suspect]
     Indication: OSTEOPOROSIS PROPHYLAXIS
     Route: 048
     Dates: start: 20020302, end: 20081030
  2. ALENDRONATE SODIUM [Suspect]
     Indication: OSTEOPOROSIS PROPHYLAXIS
     Route: 048
     Dates: start: 20081030, end: 20090807
  3. AVANDIA [Concomitant]
     Route: 065
     Dates: start: 19950101
  4. ACTOS [Concomitant]
     Route: 065
     Dates: start: 19950101
  5. ALENDRONATE SODIUM [Suspect]
     Indication: OSTEOPOROSIS
     Route: 048
     Dates: start: 20081030, end: 20090807
  6. MULTI-VITAMINS [Concomitant]
     Route: 065
     Dates: start: 19950101
  7. OXAPROZIN [Concomitant]
     Indication: OSTEOARTHRITIS
     Route: 065
     Dates: start: 20090101
  8. VERAPAMIL [Concomitant]
     Indication: HYPERTENSION
     Route: 065
     Dates: start: 20010411, end: 20100419
  9. GLIMEPIRIDE [Concomitant]
     Indication: DIABETES MELLITUS
     Route: 065
     Dates: start: 20010101
  10. FOSAMAX [Suspect]
     Indication: OSTEOPOROSIS
     Route: 048
     Dates: start: 20020302, end: 20081030
  11. AMARYL [Concomitant]
     Indication: DIABETES MELLITUS
     Route: 065
     Dates: start: 20010101
  12. GLUCOPHAGE [Concomitant]
     Indication: DIABETES MELLITUS
     Route: 065
     Dates: start: 20010101

REACTIONS (3)
  - TOOTH EXTRACTION [None]
  - BLOOD CHOLESTEROL INCREASED [None]
  - FEMUR FRACTURE [None]
